FAERS Safety Report 25674253 (Version 1)
Quarter: 2025Q3

REPORT INFORMATION
  Report Type: Spontaneous
  Country: GB (occurrence: GB)
  Receive Date: 20250813
  Receipt Date: 20250813
  Transmission Date: 20251020
  Serious: Yes (Other)
  Sender: CELLTRION
  Company Number: GB-CELLTRION INC.-2025GB007651

PATIENT

DRUGS (2)
  1. YUFLYMA [Suspect]
     Active Substance: ADALIMUMAB-AATY
     Indication: Rheumatoid arthritis
     Route: 058
  2. YUFLYMA [Suspect]
     Active Substance: ADALIMUMAB-AATY

REACTIONS (4)
  - Rheumatoid arthritis [Unknown]
  - Product distribution issue [Unknown]
  - Product dose omission issue [Unknown]
  - Therapy interrupted [Unknown]
